FAERS Safety Report 21152152 (Version 1)
Quarter: 2022Q3

REPORT INFORMATION
  Report Type: Spontaneous
  Country: US (occurrence: US)
  Receive Date: 20220730
  Receipt Date: 20220730
  Transmission Date: 20221027
  Serious: No
  Sender: FDA-Public Use
  Company Number: US-SA-SAC20220722001823

PATIENT
  Sex: Male

DRUGS (1)
  1. DUPIXENT [Suspect]
     Active Substance: DUPILUMAB
     Indication: Dermatitis atopic
     Dosage: 200 MG QOW
     Route: 058
     Dates: start: 2017

REACTIONS (7)
  - Pruritus [Unknown]
  - Pain [Unknown]
  - Scratch [Unknown]
  - Condition aggravated [Unknown]
  - Contusion [Unknown]
  - Condition aggravated [Unknown]
  - Drug ineffective [Unknown]
